FAERS Safety Report 8773177 (Version 1)
Quarter: 2012Q4

REPORT INFORMATION
  Report Type: 
  Country: GB (occurrence: GB)
  Receive Date: 20120907
  Receipt Date: 20120907
  Transmission Date: 20130627
  Serious: Yes (Other)
  Sender: FDA-Public Use
  Company Number: PHHY2012GB076829

PATIENT
  Age: 85 Year
  Sex: Male
  Weight: 63.5 kg

DRUGS (2)
  1. PROPRANOLOL [Suspect]
  2. ACETYLSALICYLIC ACID [Suspect]

REACTIONS (2)
  - Rash [Not Recovered/Not Resolved]
  - Discomfort [None]
